FAERS Safety Report 18638645 (Version 2)
Quarter: 2020Q4

REPORT INFORMATION
  Report Type: Spontaneous
  Country: US (occurrence: US)
  Receive Date: 20201219
  Receipt Date: 20201224
  Transmission Date: 20210114
  Serious: Yes (Other)
  Sender: FDA-Public Use
  Company Number: US-DRREDDYS-USA/USA/20/0130089

PATIENT
  Age: 55 Year
  Sex: Male

DRUGS (13)
  1. EVEROLIMUS. [Concomitant]
     Active Substance: EVEROLIMUS
     Dosage: 12-HOUR GOAL TROUGH CONCENTRATION OF 8 NG/ML
     Dates: start: 201807
  2. PREDNISONE. [Concomitant]
     Active Substance: PREDNISONE
     Dosage: REQUIRED CONTINUED STEROIDS (PREDNISONE 15-20MG)
     Dates: start: 2016
  3. EVEROLIMUS. [Concomitant]
     Active Substance: EVEROLIMUS
     Indication: IMMUNOSUPPRESSANT DRUG THERAPY
     Dosage: 12-HOUR GOAL TROUGH CONCENTRATION OF 5-8 NG/ML
     Dates: start: 201511, end: 201604
  4. TACROLIMUS. [Suspect]
     Active Substance: TACROLIMUS
     Indication: IMMUNOSUPPRESSANT DRUG THERAPY
     Dosage: 12- HOUR GOAL TROUGH CONCENTRATION OF 5-8NG/ML
     Dates: start: 201510, end: 201511
  5. TACROLIMUS. [Suspect]
     Active Substance: TACROLIMUS
     Dosage: INCREASED TACROLIMUS GOAL OF 8-10NG/ML
     Dates: start: 201604
  6. PREDNISONE. [Concomitant]
     Active Substance: PREDNISONE
     Indication: IMMUNOSUPPRESSANT DRUG THERAPY
     Dates: start: 201510
  7. MYCOPHENOLATE MOFETIL. [Concomitant]
     Active Substance: MYCOPHENOLATE MOFETIL
     Dates: start: 201604, end: 2018
  8. TACROLIMUS. [Suspect]
     Active Substance: TACROLIMUS
     Dosage: 12-HOUR GOAL TROUGH CONCENTRATION OF 8 NG/ML
     Dates: start: 201807
  9. TACROLIMUS. [Suspect]
     Active Substance: TACROLIMUS
     Dosage: TROUGH GOAL TO 3-5 NG/ML
     Dates: start: 201511, end: 201604
  10. TACROLIMUS. [Suspect]
     Active Substance: TACROLIMUS
     Dosage: GOAL 12-HOUR TROUGH CONCENTRATION OF 6-8 NG/ML
     Dates: start: 2018
  11. PREDNISONE. [Concomitant]
     Active Substance: PREDNISONE
     Dosage: DOSE WAS INCREASED
     Dates: start: 2018
  12. EVEROLIMUS. [Concomitant]
     Active Substance: EVEROLIMUS
     Dosage: GOAL 12-HOUR TROUGH CONCENTRATION OF 5-7 NG/ML
     Dates: start: 2018
  13. MYCOPHENOLATE MOFETIL. [Concomitant]
     Active Substance: MYCOPHENOLATE MOFETIL
     Indication: IMMUNOSUPPRESSANT DRUG THERAPY
     Dates: start: 201510, end: 201511

REACTIONS (4)
  - Chronic kidney disease [Not Recovered/Not Resolved]
  - Acute kidney injury [Recovered/Resolved]
  - Diarrhoea [Recovered/Resolved]
  - Transplant rejection [Unknown]

NARRATIVE: CASE EVENT DATE: 2019
